FAERS Safety Report 19949449 (Version 5)
Quarter: 2023Q2

REPORT INFORMATION
  Report Type: Spontaneous
  Country: US (occurrence: US)
  Receive Date: 20211013
  Receipt Date: 20230427
  Transmission Date: 20230721
  Serious: Yes (Disabling, Other)
  Sender: FDA-Public Use
  Company Number: US-ORGANON-O2110USA000855

PATIENT
  Sex: Female

DRUGS (1)
  1. SINGULAIR [Suspect]
     Active Substance: MONTELUKAST SODIUM
     Dosage: TAKE 10 MG BY MOUTH ONCE A DAY
     Route: 048
     Dates: start: 1998, end: 2012

REACTIONS (16)
  - Major depression [Not Recovered/Not Resolved]
  - Neuropsychiatric symptoms [Not Recovered/Not Resolved]
  - Bipolar disorder [Unknown]
  - Suicide attempt [Unknown]
  - Suicide attempt [Unknown]
  - Bipolar I disorder [Unknown]
  - Bipolar II disorder [Unknown]
  - Schizoaffective disorder [Unknown]
  - Hallucination, auditory [Not Recovered/Not Resolved]
  - Suicidal ideation [Not Recovered/Not Resolved]
  - Borderline personality disorder [Unknown]
  - Panic disorder [Unknown]
  - Obsessive-compulsive disorder [Unknown]
  - Post-traumatic stress disorder [Unknown]
  - Anxiety disorder [Unknown]
  - Insomnia [Unknown]

NARRATIVE: CASE EVENT DATE: 20000101
